FAERS Safety Report 6695420-9 (Version None)
Quarter: 2010Q2

REPORT INFORMATION
  Report Type: 
  Country: None (occurrence: None)
  Receive Date: 20100422
  Receipt Date: 20100422
  Transmission Date: 20101027
  Serious: Yes (Hospitalization)
  Sender: FDA-Public Use
  Company Number: None

PATIENT
  Age: 51 Year
  Sex: Female
  Weight: 68.9467 kg

DRUGS (2)
  1. LATISSE [Suspect]
     Indication: GROWTH OF EYELASHES
     Dosage: 1 DROP ON LASH BRUSH EVERY P.M. EYE LINER
     Dates: start: 20100115, end: 20100125
  2. LATISSE [Suspect]
     Indication: GROWTH OF EYELASHES
     Dosage: 1 DROP ON LASH BRUSH EVERY P.M. EYE LINER
     Dates: start: 20100127, end: 20100129

REACTIONS (8)
  - APHASIA [None]
  - ATRIAL FIBRILLATION [None]
  - BLOOD PRESSURE INCREASED [None]
  - DIZZINESS [None]
  - HEART RATE INCREASED [None]
  - MALAISE [None]
  - MOVEMENT DISORDER [None]
  - UNRESPONSIVE TO STIMULI [None]
